FAERS Safety Report 19761399 (Version 1)
Quarter: 2021Q3

REPORT INFORMATION
  Report Type: Spontaneous
  Country: GB (occurrence: GB)
  Receive Date: 20210829
  Receipt Date: 20210829
  Transmission Date: 20211014
  Serious: Yes (Disabling, Other)
  Sender: FDA-Public Use
  Company Number: None

PATIENT
  Age: 21 Year
  Sex: Female
  Weight: 55 kg

DRUGS (4)
  1. BETNOVATE [Suspect]
     Active Substance: BETAMETHASONE
  2. FUCIBET [Suspect]
     Active Substance: BETAMETHASONE VALERATE\FUSIDIC ACID
     Indication: ECZEMA
     Dates: start: 20180822, end: 20200328
  3. EUMOVATE [Suspect]
     Active Substance: CLOBETASONE BUTYRATE
  4. HYDROCORTISONE. [Suspect]
     Active Substance: HYDROCORTISONE

REACTIONS (12)
  - Tremor [None]
  - Pain [None]
  - Nasopharyngitis [None]
  - Lymphadenopathy [None]
  - Withdrawal syndrome [None]
  - Wound [None]
  - Dry skin [None]
  - Night sweats [None]
  - Decreased appetite [None]
  - Condition aggravated [None]
  - Insomnia [None]
  - Mobility decreased [None]

NARRATIVE: CASE EVENT DATE: 20200328
